FAERS Safety Report 10052939 (Version 2)
Quarter: 2014Q2

REPORT INFORMATION
  Report Type: Spontaneous
  Country: BR (occurrence: BR)
  Receive Date: 20140402
  Receipt Date: 20140613
  Transmission Date: 20141212
  Serious: Yes (Hospitalization, Other)
  Sender: FDA-Public Use
  Company Number: BR-ASTRAZENECA-2014SE21110

PATIENT
  Age: 78 Year
  Sex: Male

DRUGS (8)
  1. NEXIUM [Suspect]
     Indication: DYSPEPSIA
     Route: 048
     Dates: start: 201308, end: 201405
  2. SELOZOK [Suspect]
     Indication: CARDIOVASCULAR DISORDER
     Route: 048
     Dates: start: 20140116
  3. BRILINTA [Suspect]
     Indication: INFARCTION
     Route: 048
     Dates: start: 20131219
  4. HYDROCHLOROTHIAZIDE [Suspect]
     Indication: CARDIOVASCULAR DISORDER
     Route: 048
     Dates: start: 20140116
  5. ATORVASTATIN [Concomitant]
     Indication: CARDIOVASCULAR DISORDER
     Dosage: UNKNOWN DOSE, DAILY
     Route: 048
     Dates: start: 201401
  6. AAS PREVENT [Concomitant]
     Indication: CARDIOVASCULAR DISORDER
     Route: 048
     Dates: start: 201401
  7. DIOVAN AMLO [Concomitant]
     Indication: CARDIOVASCULAR DISORDER
     Dosage: 160/5MG, DAILY
     Route: 048
     Dates: start: 201311
  8. PLAQ [Concomitant]
     Indication: INFARCTION
     Dosage: UNKNOWN DOSE, DAILY
     Route: 048
     Dates: start: 201308, end: 20131218

REACTIONS (6)
  - Chest pain [Not Recovered/Not Resolved]
  - Nausea [Not Recovered/Not Resolved]
  - Abdominal pain [Not Recovered/Not Resolved]
  - Dyspnoea [Not Recovered/Not Resolved]
  - Abdominal pain upper [Not Recovered/Not Resolved]
  - Dizziness [Not Recovered/Not Resolved]
